FAERS Safety Report 18822097 (Version 2)
Quarter: 2021Q1

REPORT INFORMATION
  Report Type: Spontaneous
  Country: DE (occurrence: DE)
  Receive Date: 20210202
  Receipt Date: 20210209
  Transmission Date: 20210419
  Serious: Yes (Other)
  Sender: FDA-Public Use
  Company Number: DE-UCBSA-2021003800

PATIENT
  Sex: Male
  Weight: 72 kg

DRUGS (2)
  1. LEVETIRACETAM UCB [Suspect]
     Active Substance: LEVETIRACETAM
     Indication: EPILEPSY
     Dosage: 500 MG
     Dates: start: 201701
  2. TAMSULOSIN WINTHROP [Concomitant]
     Active Substance: TAMSULOSIN HYDROCHLORIDE
     Indication: BENIGN PROSTATIC HYPERPLASIA
     Dosage: 0.4 MILLIGRAM, UNK
     Dates: start: 201501

REACTIONS (13)
  - Performance status decreased [Not Recovered/Not Resolved]
  - Cardiac ablation [Unknown]
  - Dysphagia [Not Recovered/Not Resolved]
  - Cox-Maze procedure [Unknown]
  - Sneezing [Not Recovered/Not Resolved]
  - Dyspnoea [Not Recovered/Not Resolved]
  - Chest discomfort [Not Recovered/Not Resolved]
  - Dysphonia [Not Recovered/Not Resolved]
  - Tinnitus [Not Recovered/Not Resolved]
  - Fatigue [Not Recovered/Not Resolved]
  - Cough [Not Recovered/Not Resolved]
  - Cryotherapy [Unknown]
  - Throat clearing [Not Recovered/Not Resolved]
